FAERS Safety Report 4965887-2 (Version None)
Quarter: 2006Q2

REPORT INFORMATION
  Report Type: 
  Country: None (occurrence: None)
  Receive Date: 20060406
  Receipt Date: 20060406
  Transmission Date: 20061013
  Serious: Yes (Life-Threatening, Hospitalization)
  Sender: FDA-Public Use
  Company Number: None

PATIENT
  Age: 3 Year
  Sex: Female

DRUGS (2)
  1. BACITRACIN ZINC-NEOMYCIN SULFATE-POLYMYXIN B SULFATE [Suspect]
     Indication: EXCORIATION
     Dosage: SMALL AMOUNT TO ABRASION
     Dates: start: 20060327
  2. BACITRACIN ZINC-NEOMYCIN SULFATE-POLYMYXIN B SULFATE [Suspect]
     Indication: LACERATION
     Dosage: SMALL AMOUNT TO ABRASION
     Dates: start: 20060327

REACTIONS (4)
  - FEELING ABNORMAL [None]
  - GENERALISED ERYTHEMA [None]
  - HYPOTENSION [None]
  - PRURITUS [None]
